FAERS Safety Report 6271551-2 (Version None)
Quarter: 2009Q3

REPORT INFORMATION
  Report Type: 
  Country: None (occurrence: None)
  Receive Date: 20090715
  Receipt Date: 20090112
  Transmission Date: 20100115
  Serious: Yes (Other)
  Sender: FDA-Public Use
  Company Number: 200914536

PATIENT
  Sex: Male
  Weight: 71.6683 kg

DRUGS (13)
  1. CARIMUNE NF [Suspect]
     Indication: CHRONIC INFLAMMATORY DEMYELINATING POLYRADICULONEUROPATHY
     Dosage: SEE IMAGE
     Route: 042
     Dates: start: 20050809, end: 20050810
  2. CARIMUNE NF [Suspect]
     Indication: CHRONIC INFLAMMATORY DEMYELINATING POLYRADICULONEUROPATHY
     Dosage: SEE IMAGE
     Route: 042
     Dates: start: 20050907, end: 20050908
  3. CARIMUNE NF [Suspect]
  4. INSULIN (INSULIN) [Concomitant]
  5. LASIX [Concomitant]
  6. ZAROXOLYN [Concomitant]
  7. PROCHLORPERAZINE MALEATE [Concomitant]
  8. IMODIUM [Concomitant]
  9. IRON SUPPLEMENT (IRON) [Concomitant]
  10. TYLENOL [Concomitant]
  11. NORVASC [Concomitant]
  12. IRON INFUSION (IRON) [Concomitant]
  13. TUMS (CALCIUM CARBONATE) [Concomitant]

REACTIONS (4)
  - CHILLS [None]
  - HAEMATEMESIS [None]
  - RENAL FAILURE [None]
  - VOMITING [None]
